FAERS Safety Report 15140545 (Version 1)
Quarter: 2018Q3

REPORT INFORMATION
  Report Type: Spontaneous
  Country: DE (occurrence: DE)
  Receive Date: 20180713
  Receipt Date: 20180713
  Transmission Date: 20181010
  Serious: Yes (Hospitalization, Other)
  Sender: FDA-Public Use
  Company Number: DE-AUROBINDO-AUR-APL-2017-42568

PATIENT
  Age: 49 Year
  Sex: Male

DRUGS (6)
  1. OMEPRAZOLE. [Suspect]
     Active Substance: OMEPRAZOLE
     Indication: COLITIS ULCERATIVE
     Dosage: 10 MILLIGRAM
     Route: 065
  2. MESALAZIN [Suspect]
     Active Substance: MESALAMINE
     Indication: PRODUCT USED FOR UNKNOWN INDICATION
  3. CORTISON [Suspect]
     Active Substance: CORTISONE ACETATE
     Indication: HYPERTENSION
     Dosage: 10 MILLIGRAM
     Route: 065
  4. OMEPRAZOLE. [Suspect]
     Active Substance: OMEPRAZOLE
     Dosage: 20 MILLIGRAM
     Route: 065
  5. OMEPRAZOLE. [Suspect]
     Active Substance: OMEPRAZOLE
     Indication: HYPERTENSION
     Dosage: 20 MILLIGRAM
     Route: 048
  6. MESALAZIN [Suspect]
     Active Substance: MESALAMINE
     Indication: HYPERTENSION
     Dosage: 400 MILLIGRAM
     Route: 065

REACTIONS (3)
  - Transaminases increased [Unknown]
  - Hepatotoxicity [Recovering/Resolving]
  - Drug interaction [Unknown]
